APPROVED DRUG PRODUCT: HALOPERIDOL
Active Ingredient: HALOPERIDOL
Strength: 10MG
Dosage Form/Route: TABLET;ORAL
Application: A070278 | Product #002 | TE Code: AB
Applicant: MYLAN PHARMACEUTICALS INC
Approved: Jul 16, 2009 | RLD: No | RS: No | Type: RX